FAERS Safety Report 18714807 (Version 1)
Quarter: 2021Q1

REPORT INFORMATION
  Report Type: Spontaneous
  Country: US (occurrence: US)
  Receive Date: 20210108
  Receipt Date: 20210108
  Transmission Date: 20210419
  Serious: No
  Sender: FDA-Public Use
  Company Number: US-JNJFOC-20210100946

PATIENT
  Age: 46 Year
  Sex: Female

DRUGS (2)
  1. STELARA [Suspect]
     Active Substance: USTEKINUMAB
  2. STELARA [Suspect]
     Active Substance: USTEKINUMAB
     Indication: PRODUCT USED FOR UNKNOWN INDICATION
     Route: 058
     Dates: start: 202007

REACTIONS (7)
  - Erythema [Unknown]
  - Eye swelling [Unknown]
  - SARS-CoV-2 test positive [Unknown]
  - Chest discomfort [Unknown]
  - Urticaria [Not Recovered/Not Resolved]
  - Pharyngeal swelling [Unknown]
  - Swelling [Unknown]

NARRATIVE: CASE EVENT DATE: 2020
